FAERS Safety Report 10420962 (Version 1)
Quarter: 2014Q3

REPORT INFORMATION
  Report Type: Spontaneous
  Country: US (occurrence: None)
  Receive Date: 20140829
  Receipt Date: 20140829
  Transmission Date: 20150326
  Serious: Yes (Other)
  Sender: FDA-Public Use
  Company Number: None

PATIENT
  Age: 58 Year
  Sex: Female

DRUGS (2)
  1. MODERIBA [Suspect]
     Active Substance: RIBAVIRIN
     Indication: CHRONIC HEPATITIS C
     Dosage: 600MG TAB QAM AND 400MG TAB QPM, BID, PO
     Route: 048
     Dates: start: 20140808, end: 20140828
  2. SOVALDI [Concomitant]
     Active Substance: SOFOSBUVIR

REACTIONS (3)
  - Photosensitivity reaction [None]
  - Rash [None]
  - Sunburn [None]

NARRATIVE: CASE EVENT DATE: 20140828
